FAERS Safety Report 7828076-X (Version None)
Quarter: 2011Q4

REPORT INFORMATION
  Report Type: 
  Country: None (occurrence: None)
  Receive Date: 20111020
  Receipt Date: 20111011
  Transmission Date: 20120403
  Serious: Yes (Hospitalization)
  Sender: FDA-Public Use
  Company Number: JP-BAYER-2011-076927

PATIENT
  Age: 61 Year
  Sex: Male
  Weight: 61 kg

DRUGS (9)
  1. BETAMAC [SULPIRIDE] [Concomitant]
     Dosage: DAILY DOSE 600 MG
     Route: 048
  2. AKINETON [Concomitant]
     Dosage: DAILY DOSE 3 MG
     Route: 048
  3. NEXAVAR [Suspect]
     Indication: RENAL CELL CARCINOMA
     Dosage: 400 MG, BID
     Route: 048
     Dates: start: 20110620, end: 20110815
  4. INTERFERON [Concomitant]
     Dosage: UNK
     Route: 065
  5. HALOPERIDOL [Concomitant]
     Dosage: DAILY DOSE 2.25 MG
     Route: 048
  6. PROMAZINE HYDROCHLORIDE [Concomitant]
     Dosage: DAILY DOSE 37.5 MG
     Route: 048
  7. SUMIFERON [Interacting]
     Dosage: DAILY DOSE 300 MIU
     Route: 058
     Dates: start: 20110606, end: 20110812
  8. PROHEPARUM [Concomitant]
     Dosage: DAILY DOSE 3 DF
     Route: 048
     Dates: start: 20110711, end: 20110815
  9. MARZULENE S [Concomitant]
     Dosage: DAILY DOSE 2 G
     Route: 048

REACTIONS (3)
  - GAMMA-GLUTAMYLTRANSFERASE INCREASED [None]
  - ALANINE AMINOTRANSFERASE INCREASED [None]
  - ASPARTATE AMINOTRANSFERASE INCREASED [None]
